FAERS Safety Report 7237939-8 (Version None)
Quarter: 2011Q1

REPORT INFORMATION
  Report Type: 
  Country: None (occurrence: None)
  Receive Date: 20110121
  Receipt Date: 20110110
  Transmission Date: 20110831
  Serious: Yes (Hospitalization, Other)
  Sender: FDA-Public Use
  Company Number: FR-ELI_LILLY_AND_COMPANY-FR201101002098

PATIENT
  Sex: Female

DRUGS (5)
  1. TEMESTA [Concomitant]
     Route: 064
     Dates: start: 20091229, end: 20100910
  2. LARGACTIL [Concomitant]
     Dosage: 5 MG, 2/D
     Route: 064
     Dates: start: 20091229, end: 20100622
  3. VALIUM [Concomitant]
     Dosage: 100 MG, DAILY (1/D)
     Route: 064
     Dates: start: 20091229, end: 20100622
  4. PROZAC [Suspect]
     Dosage: 20 MG, 2/D
     Route: 064
     Dates: start: 20091229, end: 20100910
  5. PRIMPERAN /00041902/ [Concomitant]
     Dosage: 40 MG, DAILY (1/D)
     Route: 064
     Dates: start: 20100706, end: 20100910

REACTIONS (7)
  - HYPOGLYCAEMIA [None]
  - AGITATION NEONATAL [None]
  - OXYGEN SATURATION DECREASED [None]
  - HYPOCALCAEMIA [None]
  - BRADYCARDIA [None]
  - TREMOR [None]
  - DRUG WITHDRAWAL SYNDROME NEONATAL [None]
